FAERS Safety Report 25438884 (Version 2)
Quarter: 2025Q2

REPORT INFORMATION
  Report Type: Spontaneous
  Country: US (occurrence: US)
  Receive Date: 20250616
  Receipt Date: 20250618
  Transmission Date: 20250717
  Serious: No
  Sender: LEO PHARM
  Company Number: US-LEO Pharma-380622

PATIENT
  Age: 27 Year
  Sex: Female

DRUGS (1)
  1. ADBRY [Suspect]
     Active Substance: TRALOKINUMAB-LDRM
     Indication: Dermatitis atopic
     Dosage: TREATMENT IS ONGOING
     Route: 058
     Dates: start: 202505

REACTIONS (6)
  - Injection site erythema [Unknown]
  - Pain in extremity [Unknown]
  - Injection site pruritus [Unknown]
  - Peripheral swelling [Unknown]
  - Injection site swelling [Unknown]
  - Injection site reaction [Unknown]
